FAERS Safety Report 9156919 (Version 2)
Quarter: 2013Q1

REPORT INFORMATION
  Report Type: Spontaneous
  Country: FR (occurrence: FR)
  Receive Date: 20130312
  Receipt Date: 20130321
  Transmission Date: 20140127
  Serious: Yes (Other)
  Sender: FDA-Public Use
  Company Number: PHHY2013FR023168

PATIENT
  Sex: Female

DRUGS (3)
  1. EXELON PATCH [Suspect]
     Indication: DEMENTIA ALZHEIMER^S TYPE
     Dosage: 4.6 MG, DAILY
     Route: 062
     Dates: start: 201212, end: 20130308
  2. CARDENSIEL [Suspect]
     Dosage: 1.25 MG
     Route: 048
     Dates: start: 2008
  3. KARDEGIC [Suspect]
     Dosage: 75 MG, DAILY
     Route: 048
     Dates: start: 2008

REACTIONS (2)
  - Hallucination, auditory [Not Recovered/Not Resolved]
  - Hallucination, visual [Not Recovered/Not Resolved]
